FAERS Safety Report 18810488 (Version 1)
Quarter: 2021Q1

REPORT INFORMATION
  Report Type: Spontaneous
  Country: US (occurrence: US)
  Receive Date: 20210129
  Receipt Date: 20210129
  Transmission Date: 20210419
  Serious: No
  Sender: FDA-Public Use
  Company Number: US-PFIZER INC-2021069330

PATIENT
  Age: 78 Year
  Sex: Male

DRUGS (10)
  1. MORPHINE SULFATE. [Suspect]
     Active Substance: MORPHINE SULFATE
     Dosage: UNK
  2. COLCHICUM [Concomitant]
     Active Substance: COLCHICINE
     Dosage: UNK
  3. NITROGLYCERINE [Concomitant]
     Active Substance: NITROGLYCERIN
     Dosage: UNK
  4. ALPRAZOLAM. [Concomitant]
     Active Substance: ALPRAZOLAM
     Dosage: UNK
  5. PREDNISONE. [Suspect]
     Active Substance: PREDNISONE
     Dosage: UNK
  6. TAMSULOSIN [Concomitant]
     Active Substance: TAMSULOSIN
     Dosage: UNK
  7. PROTONIX [OMEPRAZOLE] [Concomitant]
     Active Substance: OMEPRAZOLE
     Dosage: UNK
  8. FENTANYL. [Concomitant]
     Active Substance: FENTANYL
     Dosage: UNK
  9. WARFARIN [Concomitant]
     Active Substance: WARFARIN
     Dosage: UNK
  10. FLUTICASONE. [Concomitant]
     Active Substance: FLUTICASONE
     Dosage: UNK

REACTIONS (1)
  - Drug hypersensitivity [Unknown]
